FAERS Safety Report 7145804-X (Version None)
Quarter: 2010Q4

REPORT INFORMATION
  Report Type: 
  Country: None (occurrence: None)
  Receive Date: 20101208
  Receipt Date: 20101201
  Transmission Date: 20110411
  Serious: Yes (Hospitalization)
  Sender: FDA-Public Use
  Company Number: A0898132A

PATIENT
  Age: 41 Year
  Sex: Female
  Weight: 51.1 kg

DRUGS (22)
  1. ONDANSETRON [Suspect]
     Dates: start: 20101029
  2. IRINOTECAN HCL [Suspect]
     Dosage: 232MG EVERY TWO WEEKS
     Route: 042
     Dates: start: 20101108
  3. AXITINIB [Suspect]
     Indication: COLORECTAL CANCER
     Dosage: 10MG TWICE PER DAY
     Route: 048
     Dates: start: 20101023
  4. ADRUCIL [Suspect]
     Indication: COLORECTAL CANCER
     Route: 042
     Dates: start: 20101108
  5. WELLCOVORIN [Suspect]
     Indication: COLORECTAL CANCER
     Dosage: 600MG EVERY TWO WEEKS
     Route: 042
     Dates: start: 20101108
  6. MS CONTIN [Suspect]
     Dates: start: 20100901
  7. MORPHINE SULFATE [Suspect]
     Dates: start: 20100901
  8. SENOKOT [Concomitant]
     Dates: start: 20100901
  9. ATIVAN [Concomitant]
     Dates: start: 20080901
  10. MIRALAX [Concomitant]
     Dates: start: 20101029
  11. SYNTHROID [Concomitant]
     Dates: start: 20101101
  12. ATROPINE [Concomitant]
     Dates: start: 20101108
  13. DECADRON [Concomitant]
     Dates: start: 20101108
  14. PALONOSETRON [Concomitant]
     Dates: start: 20101108
  15. COMPAZINE [Concomitant]
     Dates: start: 20101109
  16. SCOPOLAMINE [Concomitant]
     Dates: start: 20101029, end: 20101101
  17. CEFTRIAXONE [Concomitant]
     Dates: start: 20101029, end: 20101031
  18. BISACODYL [Concomitant]
     Dates: start: 20101029, end: 20101101
  19. DILAUDID [Concomitant]
     Dates: start: 20101029, end: 20101029
  20. ALBUMIN (HUMAN) [Concomitant]
     Dates: start: 20101031, end: 20101031
  21. NYSTATIN [Concomitant]
     Dates: start: 20101108
  22. FLUIDS [Concomitant]
     Route: 042

REACTIONS (2)
  - ABDOMINAL PAIN [None]
  - DYSPNOEA [None]
